FAERS Safety Report 14244968 (Version 1)
Quarter: 2017Q4

REPORT INFORMATION
  Report Type: Report from Study
  Country: None (occurrence: DE)
  Receive Date: 20171201
  Receipt Date: 20171201
  Transmission Date: 20180321
  Serious: Yes (Hospitalization, Other)
  Sender: FDA-Public Use
  Company Number: DE-ABBVIE-17K-062-2176549-00

PATIENT
  Age: 11 Year
  Sex: Male

DRUGS (1)
  1. HUMIRA [Suspect]
     Active Substance: ADALIMUMAB
     Indication: CROHN^S DISEASE
     Route: 058
     Dates: end: 2017

REACTIONS (2)
  - Small intestinal resection [Unknown]
  - Appendicitis [Recovered/Resolved]

NARRATIVE: CASE EVENT DATE: 20171122
